FAERS Safety Report 19093732 (Version 1)
Quarter: 2021Q2

REPORT INFORMATION
  Report Type: Spontaneous
  Country: US (occurrence: US)
  Receive Date: 20210405
  Receipt Date: 20210405
  Transmission Date: 20210717
  Serious: Yes (Hospitalization)
  Sender: FDA-Public Use
  Company Number: US-BAUSCH-BL-2021-010406

PATIENT
  Age: 84 Year
  Sex: Male

DRUGS (2)
  1. SOOTHE XP [Suspect]
     Active Substance: LIGHT MINERAL OIL\MINERAL OIL
     Indication: DRY EYE
     Dosage: STARTED MANY YEARS AGO?1 DROP IN BOTH EYES AS NEEDED DAILY
     Route: 047
  2. SOOTHE XP [Suspect]
     Active Substance: LIGHT MINERAL OIL\MINERAL OIL
     Dosage: DOUBLE PACK, OCT/2020 OR NOV/2020
     Route: 047
     Dates: start: 2020, end: 202103

REACTIONS (5)
  - Heart valve replacement [Unknown]
  - Product quality issue [Unknown]
  - Lacrimation increased [Recovered/Resolved]
  - Eyelid margin crusting [Unknown]
  - Vitreous floaters [Unknown]

NARRATIVE: CASE EVENT DATE: 2020
